FAERS Safety Report 10347014 (Version 3)
Quarter: 2014Q3

REPORT INFORMATION
  Report Type: Report from Study
  Country: MX (occurrence: MX)
  Receive Date: 20140729
  Receipt Date: 20140828
  Transmission Date: 20150326
  Serious: Yes (Other)
  Sender: FDA-Public Use
  Company Number: PHHY2013MX038336

PATIENT
  Sex: Female

DRUGS (3)
  1. EXFORGE HCT [Suspect]
     Active Substance: AMLODIPINE BESYLATE\HYDROCHLOROTHIAZIDE\VALSARTAN
     Indication: HYPERTENSION
     Dosage: 1 DF, (160/5/12.5MG) DAILY
     Route: 048
     Dates: start: 200907
  2. PLANTIVAL [Concomitant]
     Indication: SLEEP DISORDER
  3. PLANTIVAL [Concomitant]
     Indication: DEPRESSION
     Dosage: 1 DF, WHEN SHE HAS DEPRESSION OR COULD NOT SLEEP

REACTIONS (5)
  - Overweight [Not Recovered/Not Resolved]
  - Anxiety [Not Recovered/Not Resolved]
  - Varicose vein [Not Recovered/Not Resolved]
  - Skin exfoliation [Recovering/Resolving]
  - Psoriasis [Not Recovered/Not Resolved]
